FAERS Safety Report 14706371 (Version 1)
Quarter: 2018Q2

REPORT INFORMATION
  Report Type: Spontaneous
  Country: CN (occurrence: CN)
  Receive Date: 20180402
  Receipt Date: 20180402
  Transmission Date: 20180711
  Serious: Yes (Life-Threatening, Hospitalization)
  Sender: FDA-Public Use
  Company Number: CN-NOVOPROD-592829

PATIENT
  Age: 57 Year
  Sex: Male

DRUGS (2)
  1. NOVOMIX 30 [Suspect]
     Active Substance: INSULIN ASPART
     Dosage: 14 U, BID
     Route: 058
     Dates: start: 2013
  2. NOVOMIX 30 [Suspect]
     Active Substance: INSULIN ASPART
     Indication: TYPE 2 DIABETES MELLITUS
     Dosage: 18 U ON THE MORNING, 10 U AT NOON AND 16 U IN THE EVENING
     Route: 058
     Dates: start: 2012

REACTIONS (1)
  - Insulin autoimmune syndrome [Recovering/Resolving]

NARRATIVE: CASE EVENT DATE: 20140512
